FAERS Safety Report 6088771-2 (Version None)
Quarter: 2009Q1

REPORT INFORMATION
  Report Type: 
  Country: None (occurrence: None)
  Receive Date: 20090219
  Receipt Date: 20090209
  Transmission Date: 20090719
  Serious: Yes (Death, Other)
  Sender: FDA-Public Use
  Company Number: 2009S1000062

PATIENT
  Sex: Female

DRUGS (1)
  1. CUBICIN [Suspect]
     Indication: INFECTION

REACTIONS (4)
  - CEREBRAL HAEMORRHAGE [None]
  - HAEMODIALYSIS [None]
  - HYPERTENSION [None]
  - RENAL FAILURE [None]
